FAERS Safety Report 20486633 (Version 2)
Quarter: 2022Q1

REPORT INFORMATION
  Report Type: Spontaneous
  Country: BR (occurrence: BR)
  Receive Date: 20220217
  Receipt Date: 20220222
  Transmission Date: 20220423
  Serious: Yes (Other)
  Sender: FDA-Public Use
  Company Number: BR-TAKEDA-2022TUS010163

PATIENT
  Sex: Female

DRUGS (1)
  1. MESALAMINE [Suspect]
     Active Substance: MESALAMINE
     Indication: Colitis
     Dosage: 1200 MILLIGRAM, BID
     Route: 065

REACTIONS (4)
  - Drug dependence [Unknown]
  - Pain [Unknown]
  - Malaise [Unknown]
  - Poor quality product administered [Unknown]
